FAERS Safety Report 4634948-X (Version None)
Quarter: 2005Q2

REPORT INFORMATION
  Report Type: 
  Country: None (occurrence: None)
  Receive Date: 20050411
  Receipt Date: 20050328
  Transmission Date: 20051028
  Serious: Yes (Other)
  Sender: FDA-Public Use
  Company Number: 2005031792

PATIENT
  Sex: Male

DRUGS (1)
  1. ZOLOFT [Suspect]
     Indication: PAIN
     Dosage: 10 MG (10 MG, 1 IN 1 D), ORAL
     Route: 048

REACTIONS (11)
  - ABNORMAL BEHAVIOUR [None]
  - ARTHRALGIA [None]
  - ASTHENIA [None]
  - ATRIAL PRESSURE INCREASED [None]
  - CARDIAC VALVE DISEASE [None]
  - FALL [None]
  - JOINT INJURY [None]
  - MALAISE [None]
  - SCRATCH [None]
  - VENTRICULAR TACHYCARDIA [None]
  - VICTIM OF CRIME [None]
